FAERS Safety Report 17526366 (Version 1)
Quarter: 2020Q1

REPORT INFORMATION
  Report Type: Spontaneous
  Country: FI (occurrence: FI)
  Receive Date: 20200311
  Receipt Date: 20200311
  Transmission Date: 20200409
  Serious: Yes (Other)
  Sender: FDA-Public Use
  Company Number: FI-PFIZER INC-2020099338

PATIENT
  Age: 62 Year
  Sex: Female

DRUGS (1)
  1. TEMESTA (LORAZEPAM) [Suspect]
     Active Substance: LORAZEPAM
     Dosage: UNK

REACTIONS (4)
  - Malaise [Unknown]
  - Derealisation [Unknown]
  - Palpitations [Unknown]
  - Drug dependence [Unknown]
